FAERS Safety Report 15699316 (Version 1)
Quarter: 2018Q4

REPORT INFORMATION
  Report Type: Spontaneous
  Country: US (occurrence: US)
  Receive Date: 20181126
  Receipt Date: 20181126
  Transmission Date: 20190205
  Serious: No
  Sender: FDA-Public Use
  Company Number: None

PATIENT
  Age: 79 Year
  Sex: Male

DRUGS (21)
  1. AMPHOTERICIN B. [Suspect]
     Active Substance: AMPHOTERICIN B
     Indication: WOUND INFECTION
     Route: 042
     Dates: start: 20180625
  2. OMEPRAZOLE. [Concomitant]
     Active Substance: OMEPRAZOLE
  3. METOPROLOL SUCCINATE. [Concomitant]
     Active Substance: METOPROLOL SUCCINATE
  4. POTASSIUM [Concomitant]
     Active Substance: POTASSIUM
  5. SILVER SULFADIAZINE. [Concomitant]
     Active Substance: SILVER SULFADIAZINE
  6. ALBUTEROL. [Concomitant]
     Active Substance: ALBUTEROL
  7. ASPIRIN. [Concomitant]
     Active Substance: ASPIRIN
  8. MIRTAZAPINE. [Concomitant]
     Active Substance: MIRTAZAPINE
  9. TIOTROPIUM [Concomitant]
     Active Substance: TIOTROPIUM
  10. GABAPENTIN. [Concomitant]
     Active Substance: GABAPENTIN
  11. GUAFENESIN [Concomitant]
     Active Substance: GUAIFENESIN
  12. MUPIROCIN. [Concomitant]
     Active Substance: MUPIROCIN
  13. BUDESONIDE/FORMOTEROL [Concomitant]
     Active Substance: BUDESONIDE\FORMOTEROL
  14. DOXYCYCLINE. [Concomitant]
     Active Substance: DOXYCYCLINE
  15. TRAMADOL. [Concomitant]
     Active Substance: TRAMADOL
  16. ZOLPIDEM [Concomitant]
     Active Substance: ZOLPIDEM\ZOLPIDEM TARTRATE
  17. ACETAMINOPHEN. [Concomitant]
     Active Substance: ACETAMINOPHEN
  18. FUROSEMIDE. [Concomitant]
     Active Substance: FUROSEMIDE
  19. SIMVASTATIN. [Concomitant]
     Active Substance: SIMVASTATIN
  20. TAMSULOSIN [Concomitant]
     Active Substance: TAMSULOSIN
  21. VENLAFAXINE [Concomitant]
     Active Substance: VENLAFAXINE HYDROCHLORIDE

REACTIONS (4)
  - Renal disorder [None]
  - Blood creatinine increased [None]
  - Mental status changes [None]
  - Oedema peripheral [None]

NARRATIVE: CASE EVENT DATE: 20180703
